FAERS Safety Report 6929876-0 (Version None)
Quarter: 2010Q3

REPORT INFORMATION
  Report Type: 
  Country: None (occurrence: None)
  Receive Date: 20100817
  Receipt Date: 20100817
  Transmission Date: 20110219
  Serious: Yes (Life-Threatening, Hospitalization, Other)
  Sender: FDA-Public Use
  Company Number: None

PATIENT
  Sex: Male
  Weight: 164.2021 kg

DRUGS (1)
  1. BYETTA [Suspect]
     Indication: TYPE 2 DIABETES MELLITUS
     Dosage: 10 UGM BID SQ
     Route: 058
     Dates: start: 20100301

REACTIONS (7)
  - ABDOMINAL PAIN UPPER [None]
  - AMNESIA [None]
  - BLOOD AMYLASE DECREASED [None]
  - HEPATIC ENZYME ABNORMAL [None]
  - LOSS OF CONSCIOUSNESS [None]
  - NAUSEA [None]
  - TYPE 1 DIABETES MELLITUS [None]
